FAERS Safety Report 10732380 (Version 1)
Quarter: 2015Q1

REPORT INFORMATION
  Report Type: Spontaneous
  Country: SA (occurrence: SA)
  Receive Date: 20150123
  Receipt Date: 20150123
  Transmission Date: 20150721
  Serious: Yes (Death)
  Sender: FDA-Public Use
  Company Number: SA-CIPLA LTD.-2015SA00452

PATIENT

DRUGS (13)
  1. ACYCLOVIR. [Concomitant]
     Active Substance: ACYCLOVIR
  2. CARBOPLATIN. [Suspect]
     Active Substance: CARBOPLATIN
     Indication: BRAIN NEOPLASM
     Dosage: 17 MG/KG ON DAYS 4 AND 3
  3. METHOTREXATE [Suspect]
     Active Substance: METHOTREXATE
     Indication: BRAIN NEOPLASM
  4. RADIOTHERAPY [Suspect]
     Active Substance: RADIATION THERAPY
     Indication: BRAIN NEOPLASM
  5. URSODIOL. [Concomitant]
     Active Substance: URSODIOL
  6. CYCLOPHOSPHAMIDE. [Suspect]
     Active Substance: CYCLOPHOSPHAMIDE
     Indication: BRAIN NEOPLASM
     Dosage: UNK
  7. GRANULOCYTE-COLONY STIMULATING FACTOR [Concomitant]
     Active Substance: FILGRASTIM
  8. FLUCONAZOLE. [Concomitant]
     Active Substance: FLUCONAZOLE
  9. VINCRISTINE [Suspect]
     Active Substance: VINCRISTINE
     Indication: BRAIN NEOPLASM
  10. THIOTEPA. [Suspect]
     Active Substance: THIOTEPA
     Indication: BRAIN NEOPLASM
     Dosage: 10 MG/KG ON DAYS 4 AND 3
  11. PIPERACILLIN/TAZOBACTAM [Concomitant]
     Active Substance: PIPERACILLIN SODIUM\TAZOBACTAM SODIUM
  12. CISPLATIN. [Suspect]
     Active Substance: CISPLATIN
     Indication: BRAIN NEOPLASM
  13. ETOPOSIDE. [Suspect]
     Active Substance: ETOPOSIDE
     Indication: BRAIN NEOPLASM

REACTIONS (2)
  - Neoplasm progression [Fatal]
  - Brain neoplasm [None]
